FAERS Safety Report 6664780-7 (Version None)
Quarter: 2010Q1

REPORT INFORMATION
  Report Type: 
  Country: None (occurrence: None)
  Receive Date: 20100330
  Receipt Date: 20100317
  Transmission Date: 20100710
  Serious: Yes (Other)
  Sender: FDA-Public Use
  Company Number: 009013

PATIENT
  Age: 39 Year
  Sex: Male

DRUGS (1)
  1. KEPPRA [Suspect]
     Indication: HAEMANGIOMA
     Dosage: 1500 MG QD, ORAL
     Route: 048
     Dates: start: 20090601, end: 20100201

REACTIONS (2)
  - HYPOMANIA [None]
  - WEIGHT DECREASED [None]
